FAERS Safety Report 13677242 (Version 1)
Quarter: 2017Q2

REPORT INFORMATION
  Report Type: Spontaneous
  Country: US (occurrence: US)
  Receive Date: 20170621
  Receipt Date: 20170621
  Transmission Date: 20170830
  Serious: Yes (Hospitalization)
  Sender: FDA-Public Use
  Company Number: None

PATIENT
  Age: 66 Year
  Sex: Female

DRUGS (10)
  1. PREDNISONE. [Concomitant]
     Active Substance: PREDNISONE
  2. CLONAZEPAM. [Concomitant]
     Active Substance: CLONAZEPAM
  3. POTASSIUM [Concomitant]
     Active Substance: POTASSIUM
  4. SIMVASTATIN. [Concomitant]
     Active Substance: SIMVASTATIN
  5. MELOXICAM. [Concomitant]
     Active Substance: MELOXICAM
  6. LEVOTHYROXINE. [Concomitant]
     Active Substance: LEVOTHYROXINE
  7. PREMARIN [Concomitant]
     Active Substance: ESTROGENS, CONJUGATED
  8. IRBESARTAN. [Concomitant]
     Active Substance: IRBESARTAN
  9. ENBREL [Suspect]
     Active Substance: ETANERCEPT
     Indication: RHEUMATOID ARTHRITIS
     Dosage: ?          OTHER FREQUENCY:WEEKLY;?
     Route: 058
     Dates: start: 20100420
  10. DOXEPIN [Concomitant]
     Active Substance: DOXEPIN

REACTIONS (3)
  - Infection [None]
  - Drug dose omission [None]
  - Urinary tract infection [None]

NARRATIVE: CASE EVENT DATE: 20170529
